FAERS Safety Report 15555166 (Version 2)
Quarter: 2018Q4

REPORT INFORMATION
  Report Type: Report from Study
  Country: UG (occurrence: UG)
  Receive Date: 20181026
  Receipt Date: 20181204
  Transmission Date: 20190205
  Serious: Yes (Congenital Anomaly, Other)
  Sender: FDA-Public Use
  Company Number: UG-VIIV HEALTHCARE LIMITED-UG2018GSK188007

PATIENT
  Age: 0 Day
  Weight: 3.1 kg

DRUGS (1)
  1. DOLUTEGRAVIR [Suspect]
     Active Substance: DOLUTEGRAVIR
     Indication: HIV INFECTION
     Dosage: 50 MG, QD
     Route: 064
     Dates: start: 20180606

REACTIONS (1)
  - Congenital umbilical hernia [Not Recovered/Not Resolved]

NARRATIVE: CASE EVENT DATE: 20180828
